FAERS Safety Report 22844092 (Version 4)
Quarter: 2023Q4

REPORT INFORMATION
  Report Type: Report from Study
  Country: US (occurrence: US)
  Receive Date: 20230821
  Receipt Date: 20231116
  Transmission Date: 20240110
  Serious: Yes (Hospitalization)
  Sender: FDA-Public Use
  Company Number: US-JNJFOC-20230846071

PATIENT
  Age: 3 Decade
  Sex: Female
  Weight: 83.99 kg

DRUGS (3)
  1. INFLIXIMAB [Suspect]
     Active Substance: INFLIXIMAB
     Indication: Inflammatory bowel disease
     Route: 041
     Dates: start: 20070410, end: 20140723
  2. INFLIXIMAB [Suspect]
     Active Substance: INFLIXIMAB
     Dosage: LAST ADMINISTRATION RECORDED WAS 11-JUL-2021
     Route: 041
     Dates: start: 20150805
  3. RISANKIZUMAB [Concomitant]
     Active Substance: RISANKIZUMAB
     Route: 065

REACTIONS (3)
  - Enteritis infectious [Recovered/Resolved]
  - Hypertension [Recovered/Resolved]
  - Pyrexia [Recovered/Resolved]

NARRATIVE: CASE EVENT DATE: 20230109
